FAERS Safety Report 13593365 (Version 1)
Quarter: 2017Q2

REPORT INFORMATION
  Report Type: Spontaneous
  Country: US (occurrence: US)
  Receive Date: 20170530
  Receipt Date: 20170530
  Transmission Date: 20170830
  Serious: Yes (Hospitalization, Other)
  Sender: FDA-Public Use
  Company Number: US-SMITH AND NEPHEW, INC-2017SMT00357

PATIENT
  Age: 59 Year
  Sex: Female
  Weight: 65.76 kg

DRUGS (5)
  1. VICTOZA [Concomitant]
     Active Substance: LIRAGLUTIDE
  2. METFORMIN [Concomitant]
     Active Substance: METFORMIN HYDROCHLORIDE
     Route: 048
  3. REGRANEX [Suspect]
     Active Substance: BECAPLERMIN
     Indication: WOUND
     Dosage: UNK
     Route: 061
     Dates: start: 20170503, end: 20170504
  4. NOVOLOG [Concomitant]
     Active Substance: INSULIN ASPART
  5. MORPHINE SULFATE. [Concomitant]
     Active Substance: MORPHINE SULFATE
     Indication: PAIN
     Dosage: 16 MG, 2X/DAY

REACTIONS (5)
  - Wound abscess [Recovering/Resolving]
  - Staphylococcal osteomyelitis [Recovering/Resolving]
  - Wound complication [Recovering/Resolving]
  - Wound infection staphylococcal [Recovering/Resolving]
  - Amputation [Recovered/Resolved with Sequelae]

NARRATIVE: CASE EVENT DATE: 201705
